FAERS Safety Report 5642522-1 (Version None)
Quarter: 2008Q1

REPORT INFORMATION
  Report Type: 
  Country: None (occurrence: None)
  Receive Date: 20080228
  Receipt Date: 20080222
  Transmission Date: 20080703
  Serious: Yes (Hospitalization)
  Sender: FDA-Public Use
  Company Number: JP-SP-2007-04407

PATIENT
  Age: 77 Year
  Sex: Male

DRUGS (2)
  1. IMMUCYST [Suspect]
     Indication: BLADDER CANCER
     Route: 043
     Dates: start: 20051114, end: 20060220
  2. GATIFLOXACIN HYDRATE [Concomitant]
     Route: 048
     Dates: start: 20051114, end: 20060306

REACTIONS (4)
  - PYREXIA [None]
  - PYURIA [None]
  - URINARY TRACT INFECTION [None]
  - WHITE BLOOD CELL COUNT INCREASED [None]
